FAERS Safety Report 7372054-4 (Version None)
Quarter: 2011Q1

REPORT INFORMATION
  Report Type: 
  Country: None (occurrence: None)
  Receive Date: 20110324
  Receipt Date: 20110310
  Transmission Date: 20110831
  Serious: Yes (Other)
  Sender: FDA-Public Use
  Company Number: PHRM2007FR02399

PATIENT
  Sex: Female

DRUGS (9)
  1. ZOMETA [Suspect]
     Indication: COMPLEX REGIONAL PAIN SYNDROME
     Dosage: UNK
     Dates: start: 20060330
  2. ZOMETA [Suspect]
     Dosage: UNK
     Dates: start: 20060428
  3. VITAMIN B-12 [Concomitant]
     Dosage: 2 MG, UNK
  4. ZOMETA [Suspect]
     Dosage: UNK
     Dates: start: 20060901
  5. BROMAZEPAM [Concomitant]
  6. ZOMETA [Suspect]
     Dosage: UNK
     Dates: start: 20060725
  7. LYRICA [Concomitant]
     Dosage: 75 MG, TID
  8. ZOMETA [Suspect]
     Dosage: UNK
     Dates: start: 20060602
  9. ZOMETA [Suspect]
     Dosage: UNK
     Dates: start: 20060630

REACTIONS (15)
  - PURULENT DISCHARGE [None]
  - DEVICE FAILURE [None]
  - EXCESSIVE GRANULATION TISSUE [None]
  - ORAL PAIN [None]
  - TOOTH FRACTURE [None]
  - BONE DENSITY DECREASED [None]
  - JAW DISORDER [None]
  - BONE DISORDER [None]
  - MAJOR DEPRESSION [None]
  - OSTEONECROSIS OF JAW [None]
  - GINGIVAL DISORDER [None]
  - DRUG INEFFECTIVE [None]
  - GINGIVAL PAIN [None]
  - OSTEOMYELITIS [None]
  - RESORPTION BONE INCREASED [None]
